FAERS Safety Report 7917795-2 (Version None)
Quarter: 2011Q4

REPORT INFORMATION
  Report Type: 
  Country: None (occurrence: None)
  Receive Date: 20111116
  Receipt Date: 20111108
  Transmission Date: 20120403
  Serious: Yes (Other)
  Sender: FDA-Public Use
  Company Number: US-JNJFOC-20110405896

PATIENT
  Age: 57 Year
  Sex: Female
  Weight: 68.04 kg

DRUGS (2)
  1. ROGAINE (FOR WOMEN) [Suspect]
     Indication: ALOPECIA
     Route: 061
     Dates: start: 20000101
  2. ROGAINE (FOR WOMEN) [Suspect]
     Route: 061

REACTIONS (5)
  - DRUG INEFFECTIVE [None]
  - BENIGN NEOPLASM [None]
  - OFF LABEL USE [None]
  - LOCALISED INFECTION [None]
  - INCORRECT DOSE ADMINISTERED [None]
